FAERS Safety Report 15356875 (Version 5)
Quarter: 2021Q1

REPORT INFORMATION
  Report Type: Spontaneous
  Country: US (occurrence: US)
  Receive Date: 20180906
  Receipt Date: 20210331
  Transmission Date: 20210419
  Serious: No
  Sender: FDA-Public Use
  Company Number: US-SA-2018SA248635

PATIENT
  Age: 53 Year
  Sex: Male
  Weight: 65.7 kg

DRUGS (6)
  1. DUPIXENT [Suspect]
     Active Substance: DUPILUMAB
     Indication: DERMATITIS ATOPIC
     Dosage: 300 MG, QOW
     Route: 058
     Dates: start: 20180321
  2. TACROLIMUS. [Concomitant]
     Active Substance: TACROLIMUS
  3. AFLURIA QUAD [Concomitant]
  4. LORATADINE. [Concomitant]
     Active Substance: LORATADINE
  5. SYMBICORT [Concomitant]
     Active Substance: BUDESONIDE\FORMOTEROL FUMARATE DIHYDRATE
     Indication: ASTHMA
     Dosage: 1 DF (PUFF)
     Dates: start: 2012
  6. HALOBETASOL PROPIONATE. [Concomitant]
     Active Substance: HALOBETASOL PROPIONATE

REACTIONS (10)
  - Dermatitis atopic [Recovered/Resolved]
  - Peripheral coldness [Unknown]
  - Raynaud^s phenomenon [Unknown]
  - Chillblains [Unknown]
  - Rash [Recovered/Resolved]
  - Pruritus [Recovered/Resolved]
  - Injection site haemorrhage [Unknown]
  - Wrong technique in device usage process [Unknown]
  - Impaired healing [Unknown]
  - Therapeutic response decreased [Recovered/Resolved]

NARRATIVE: CASE EVENT DATE: 2018
